FAERS Safety Report 7957690-6 (Version None)
Quarter: 2011Q4

REPORT INFORMATION
  Report Type: 
  Country: None (occurrence: None)
  Receive Date: 20111205
  Receipt Date: 20111129
  Transmission Date: 20120403
  Serious: Yes (Other)
  Sender: FDA-Public Use
  Company Number: PHEH2011US010662

PATIENT
  Sex: Female

DRUGS (5)
  1. VITAMIN D [Concomitant]
     Dosage: UNK UKN, UNK
  2. FOLIC ACID [Concomitant]
     Dosage: UNK UKN, UNK
  3. GILENYA [Suspect]
     Indication: MULTIPLE SCLEROSIS
     Dosage: 0.5 MG, DAILY
     Route: 048
     Dates: start: 20110401
  4. MICARDIS [Concomitant]
     Dosage: UNK UKN, UNK
  5. DEPAKOTE [Concomitant]
     Dosage: UNK UKN, UNK

REACTIONS (2)
  - CONVULSION [None]
  - MALAISE [None]
